FAERS Safety Report 11841022 (Version 1)
Quarter: 2015Q4

REPORT INFORMATION
  Report Type: Report from Study
  Country: CA (occurrence: CA)
  Receive Date: 20151216
  Receipt Date: 20151216
  Transmission Date: 20160305
  Serious: Yes (Hospitalization, Other)
  Sender: FDA-Public Use
  Company Number: CA-AMGEN-CANSL2015132224

PATIENT
  Age: 81 Year
  Sex: Female

DRUGS (1)
  1. XGEVA [Suspect]
     Active Substance: DENOSUMAB
     Indication: BREAST CANCER METASTATIC
     Dosage: 120 MG/1.7 ML, UNK
     Route: 065
     Dates: start: 20151108

REACTIONS (12)
  - Metastases to central nervous system [Unknown]
  - Hiatus hernia [Unknown]
  - Dehydration [Unknown]
  - Back pain [Unknown]
  - Dyspnoea [Unknown]
  - Metastases to spine [Unknown]
  - Metastases to bone [Unknown]
  - Nausea [Unknown]
  - Dysphagia [Unknown]
  - Disorientation [Unknown]
  - Metastases to liver [Unknown]
  - Dumping syndrome [Unknown]
